FAERS Safety Report 19856453 (Version 1)
Quarter: 2021Q3

REPORT INFORMATION
  Report Type: Spontaneous
  Country: IL (occurrence: IL)
  Receive Date: 20210920
  Receipt Date: 20210920
  Transmission Date: 20211014
  Serious: Yes (Other)
  Sender: FDA-Public Use
  Company Number: IL-NOVOPROD-846017

PATIENT
  Age: 50 Year
  Sex: Female

DRUGS (2)
  1. SAXENDA [Suspect]
     Active Substance: LIRAGLUTIDE
     Indication: PRODUCT USED FOR UNKNOWN INDICATION
     Dosage: UNK
     Route: 065
  2. SAXENDA [Suspect]
     Active Substance: LIRAGLUTIDE
     Dosage: 3 MG (DOSE INCREASED)
     Route: 065
     Dates: start: 202107

REACTIONS (12)
  - Cervix carcinoma [Unknown]
  - Asthenia [Unknown]
  - Vaginal discharge [Unknown]
  - Intraocular pressure test abnormal [Unknown]
  - Dizziness [Unknown]
  - Photopsia [Unknown]
  - Nausea [Unknown]
  - Constipation [Unknown]
  - Decreased appetite [Not Recovered/Not Resolved]
  - Weight decreased [Unknown]
  - Postmenopausal haemorrhage [Unknown]
  - Vision blurred [Unknown]
